FAERS Safety Report 25439696 (Version 1)
Quarter: 2025Q2

REPORT INFORMATION
  Report Type: Spontaneous
  Country: FI (occurrence: FI)
  Receive Date: 20250616
  Receipt Date: 20250616
  Transmission Date: 20250716
  Serious: Yes (Hospitalization)
  Sender: SANDOZ
  Company Number: FI-Orion Corporation ORION PHARMA-PRO 2025-0003

PATIENT

DRUGS (4)
  1. BUPROPION [Suspect]
     Active Substance: BUPROPION
     Indication: Tobacco use disorder
     Route: 065
  2. PROPRANOLOL [Suspect]
     Active Substance: PROPRANOLOL HYDROCHLORIDE
     Indication: Anxiety
     Route: 065
  3. QUETIAPINE [Suspect]
     Active Substance: QUETIAPINE
     Indication: Product used for unknown indication
     Route: 065
  4. TEMAZEPAM [Suspect]
     Active Substance: TEMAZEPAM
     Indication: Insomnia
     Route: 065

REACTIONS (8)
  - Poisoning deliberate [Recovered/Resolved]
  - Suicide attempt [Recovered/Resolved]
  - Hypoxic-ischaemic encephalopathy [Recovered/Resolved]
  - Pulseless electrical activity [Recovered/Resolved]
  - Systolic dysfunction [Recovered/Resolved]
  - Bradycardia [Recovered/Resolved]
  - Seizure [Recovered/Resolved]
  - Product use in unapproved indication [Unknown]
